FAERS Safety Report 7526422-8 (Version None)
Quarter: 2011Q2

REPORT INFORMATION
  Report Type: 
  Country: None (occurrence: None)
  Receive Date: 20110606
  Receipt Date: 20110603
  Transmission Date: 20111010
  Serious: Yes (Other)
  Sender: FDA-Public Use
  Company Number: VE-PFIZER INC-2011099037

PATIENT
  Age: 69 Year
  Sex: Male

DRUGS (4)
  1. ZOLOFT [Suspect]
     Indication: DEPRESSION
     Dosage: 50 MG, 1X/DAY
     Route: 048
     Dates: start: 20100401, end: 20100101
  2. TRAZODONE HCL [Concomitant]
     Indication: DEPRESSION
     Dosage: 50 MG, 1X/DAY
     Route: 048
     Dates: start: 20100401
  3. DIAZEPAM [Concomitant]
     Indication: DEPRESSION
     Dosage: 8 MG, 1X/DAY
     Route: 048
     Dates: start: 20100401
  4. TAFIL - SLOW RELEASE [Concomitant]
     Indication: DEPRESSION
     Dosage: UNK
     Route: 048
     Dates: start: 20100401

REACTIONS (1)
  - PARKINSON'S DISEASE [None]
